FAERS Safety Report 25121580 (Version 1)
Quarter: 2025Q1

REPORT INFORMATION
  Report Type: Spontaneous
  Country: RU (occurrence: RU)
  Receive Date: 20250326
  Receipt Date: 20250326
  Transmission Date: 20250408
  Serious: Yes (Other)
  Sender: ROCHE
  Company Number: RU-ROCHE-10000239352

PATIENT
  Age: 75 Year
  Sex: Female

DRUGS (4)
  1. PERTUZUMAB [Suspect]
     Active Substance: PERTUZUMAB
     Indication: Invasive breast carcinoma
     Dosage: DOSE: 840/420MG
     Route: 065
     Dates: start: 201803, end: 201805
  2. TRASTUZUMAB [Suspect]
     Active Substance: TRASTUZUMAB
     Indication: Invasive breast carcinoma
     Dosage: DOSE: 8/6 MG/KG
     Route: 065
     Dates: start: 201803, end: 201805
  3. ADO-TRASTUZUMAB EMTANSINE [Suspect]
     Active Substance: ADO-TRASTUZUMAB EMTANSINE
     Indication: Invasive breast carcinoma
     Dosage: DOSE: 3.6MG/KG
     Route: 042
     Dates: start: 201806, end: 202001
  4. PACLITAXEL [Suspect]
     Active Substance: PACLITAXEL
     Indication: Invasive breast carcinoma
     Dosage: 80MG/M2
     Route: 065
     Dates: start: 201803, end: 201805

REACTIONS (2)
  - Disease progression [Recovered/Resolved]
  - Polyneuropathy [Unknown]
